APPROVED DRUG PRODUCT: CARTROL
Active Ingredient: CARTEOLOL HYDROCHLORIDE
Strength: 5MG
Dosage Form/Route: TABLET;ORAL
Application: N019204 | Product #002
Applicant: ABBVIE INC
Approved: Dec 28, 1988 | RLD: No | RS: No | Type: DISCN